FAERS Safety Report 5333927-7 (Version None)
Quarter: 2007Q2

REPORT INFORMATION
  Report Type: 
  Country: None (occurrence: None)
  Receive Date: 20070524
  Receipt Date: 20070514
  Transmission Date: 20071010
  Serious: Yes (Death, Hospitalization)
  Sender: FDA-Public Use
  Company Number: FR-SANOFI-SYNTHELABO-A02200701400

PATIENT
  Age: 78 Year
  Sex: Female

DRUGS (8)
  1. GLIMEPIRIDE [Suspect]
     Indication: DIABETES MELLITUS
     Dosage: UNK
     Route: 048
  2. AMIODARONE HCL [Suspect]
     Indication: ATRIAL FIBRILLATION
     Route: 048
     Dates: end: 20070322
  3. AMIODARONE HCL [Suspect]
     Route: 048
     Dates: end: 20070322
  4. FUROSEMIDE BIOGARAN [Suspect]
     Indication: ESSENTIAL HYPERTENSION
     Dosage: UNK
     Route: 048
  5. TAHOR [Suspect]
     Indication: DRUG USE FOR UNKNOWN INDICATION
     Dosage: UNK
     Route: 048
  6. AMLOR [Suspect]
     Indication: ESSENTIAL HYPERTENSION
     Dosage: UNK
     Route: 048
  7. PLAVIX [Suspect]
     Indication: DRUG USE FOR UNKNOWN INDICATION
     Dosage: UNK
     Route: 048
  8. LEVOTHYROXINE SODIUM [Suspect]
     Dosage: UNK
     Route: 048
     Dates: start: 20040101

REACTIONS (3)
  - DYSPNOEA [None]
  - HYPOXIA [None]
  - LUNG DISORDER [None]
